FAERS Safety Report 11887023 (Version 4)
Quarter: 2016Q1

REPORT INFORMATION
  Report Type: Report from Study
  Country: US (occurrence: US)
  Receive Date: 20160104
  Receipt Date: 20160203
  Transmission Date: 20160526
  Serious: Yes (Other)
  Sender: FDA-Public Use
  Company Number: US-UCBSA-2015031327

PATIENT
  Sex: Female

DRUGS (8)
  1. LEVETIRACETAM. [Suspect]
     Active Substance: LEVETIRACETAM
     Dosage: 1000 MG, 2X/DAY (BID)
     Dates: start: 2015, end: 2015
  2. VIMPAT [Suspect]
     Active Substance: LACOSAMIDE
     Indication: PRODUCT USED FOR UNKNOWN INDICATION
     Dosage: UNK
     Dates: start: 2015
  3. DILANTIN [Concomitant]
     Active Substance: PHENYTOIN
     Indication: SEIZURE
     Dosage: 330 MG (3 100 MG IN THE MORNING ALONG WITH 30 MG)
  4. LEVETIRACETAM. [Concomitant]
     Active Substance: LEVETIRACETAM
     Indication: PRODUCT USED FOR UNKNOWN INDICATION
     Dosage: UNK
  5. LEVETIRACETAM. [Suspect]
     Active Substance: LEVETIRACETAM
     Indication: SEIZURE
     Dosage: 1500 MG
     Dates: start: 20150701, end: 2015
  6. FYCOMPA [Concomitant]
     Active Substance: PERAMPANEL
     Indication: SEIZURE
     Dosage: 4 MG DAILY DOSE
  7. ZONEGRAN [Concomitant]
     Active Substance: ZONISAMIDE
     Indication: PRODUCT USED FOR UNKNOWN INDICATION
     Dosage: UNK
  8. ESLICARBAZEPINE ACETATE [Concomitant]
     Active Substance: ESLICARBAZEPINE ACETATE
     Indication: SEIZURE
     Dosage: 200 MG DAILY DOSE

REACTIONS (14)
  - Partial seizures [Unknown]
  - Somnolence [Unknown]
  - Poor quality sleep [Unknown]
  - Mood swings [Unknown]
  - Drug ineffective [Unknown]
  - Oropharyngeal pain [Unknown]
  - Head injury [Unknown]
  - Weight decreased [Unknown]
  - Headache [Recovered/Resolved]
  - Seizure [Recovered/Resolved]
  - Unevaluable event [Unknown]
  - Stress [Unknown]
  - Blepharospasm [Recovered/Resolved]
  - Ear pain [Unknown]

NARRATIVE: CASE EVENT DATE: 2015
